FAERS Safety Report 18491710 (Version 1)
Quarter: 2020Q4

REPORT INFORMATION
  Report Type: Report from Study
  Country: FI (occurrence: FI)
  Receive Date: 20201111
  Receipt Date: 20201111
  Transmission Date: 20210114
  Serious: Yes (Other)
  Sender: FDA-Public Use
  Company Number: FI-MYLANLABS-2020M1092222

PATIENT
  Sex: Male

DRUGS (3)
  1. DEPRAKINE                          /00228501/ [Concomitant]
     Active Substance: VALPROATE SODIUM
     Indication: SCHIZOPHRENIA
     Dosage: UNK
  2. LEPONEX [Suspect]
     Active Substance: CLOZAPINE
     Indication: SCHIZOPHRENIA
     Dosage: 300 MILLIGRAM, QD
  3. LAMICTAL [Concomitant]
     Active Substance: LAMOTRIGINE
     Indication: SCHIZOPHRENIA
     Dosage: UNK

REACTIONS (3)
  - Neutrophil count decreased [Recovered/Resolved]
  - Product administration error [Unknown]
  - Influenza [Unknown]

NARRATIVE: CASE EVENT DATE: 202011
